FAERS Safety Report 26168889 (Version 1)
Quarter: 2025Q4

REPORT INFORMATION
  Report Type: Spontaneous
  Country: US (occurrence: US)
  Receive Date: 20251217
  Receipt Date: 20251217
  Transmission Date: 20260119
  Serious: No
  Sender: PACIRA
  Company Number: US-ORG100016242-2025000364

PATIENT

DRUGS (1)
  1. EXPAREL [Suspect]
     Active Substance: BUPIVACAINE
     Indication: Oral surgery
     Dosage: 2 INJECTIONS: UPPER RIGHT QUADRANT OF THE MOUTH, UPPER LEFT QUADRANT OF THE MOUTH
     Route: 050
     Dates: start: 20250611, end: 20250611

REACTIONS (1)
  - Therapeutic product effect incomplete [Unknown]
